FAERS Safety Report 6197580-5 (Version None)
Quarter: 2009Q2

REPORT INFORMATION
  Report Type: 
  Country: None (occurrence: None)
  Receive Date: 20090521
  Receipt Date: 20090512
  Transmission Date: 20091009
  Serious: Yes (Hospitalization)
  Sender: FDA-Public Use
  Company Number: PHHO2009NL05939

PATIENT
  Sex: Female
  Weight: 72 kg

DRUGS (3)
  1. ERL 080A ERL+TAB [Suspect]
     Indication: LUNG TRANSPLANT
     Dosage: 1440 MG
     Route: 048
     Dates: start: 20080727
  2. NEORAL [Concomitant]
     Indication: LUNG TRANSPLANT
     Dosage: UNK
     Dates: start: 20080727
  3. PREDNISOLONE [Concomitant]
     Indication: LUNG TRANSPLANT
     Dosage: UNK
     Dates: start: 20080727

REACTIONS (3)
  - ABDOMINAL PAIN [None]
  - DIVERTICULITIS [None]
  - LUNG TRANSPLANT REJECTION [None]
